FAERS Safety Report 21967377 (Version 1)
Quarter: 2023Q1

REPORT INFORMATION
  Report Type: Spontaneous
  Country: GB (occurrence: GB)
  Receive Date: 20230208
  Receipt Date: 20230208
  Transmission Date: 20230417
  Serious: Yes (Other)
  Sender: FDA-Public Use
  Company Number: None

PATIENT
  Age: 54 Year
  Sex: Male
  Weight: 85 kg

DRUGS (12)
  1. SULFASALAZINE [Suspect]
     Active Substance: SULFASALAZINE
     Dosage: 1 G, 2X/DAY
     Dates: start: 20230105
  2. ATORVASTATIN [Concomitant]
     Active Substance: ATORVASTATIN
     Dosage: EVERY EVENING
     Dates: start: 20210728
  3. BECLOMETHASONE DIPROPIONATE [Concomitant]
     Active Substance: BECLOMETHASONE DIPROPIONATE
     Dosage: 2 DF, 2X/DAY
     Route: 055
     Dates: start: 20220926
  4. FOLIC ACID [Concomitant]
     Active Substance: FOLIC ACID
     Dosage: TAKE ONE DAILY EXCEPT METHOTREXATE DAY
     Dates: start: 20210728, end: 20230105
  5. CHOLECALCIFEROL [Concomitant]
     Active Substance: CHOLECALCIFEROL
     Dosage: EACH WEEK
     Dates: start: 20220606
  6. LANSOPRAZOLE [Concomitant]
     Active Substance: LANSOPRAZOLE
     Dosage: 1 DF, 1X/DAY
     Dates: start: 20220810
  7. NAPROXEN [Concomitant]
     Active Substance: NAPROXEN
     Dosage: AFTER FOOD WHEN REQ
     Dates: start: 20221212, end: 20221226
  8. ACETAMINOPHEN [Concomitant]
     Active Substance: ACETAMINOPHEN
     Dosage: TAKE 2 TABS 4 TIMES/DAY
     Dates: start: 20221212, end: 20221224
  9. PREDNISOLONE [Concomitant]
     Active Substance: PREDNISOLONE
     Dosage: TAKE AS DIRECTED BY RHEUMATOLOGY TEAM
     Dates: start: 20230117, end: 20230122
  10. PROCHLORPERAZINE [Concomitant]
     Active Substance: PROCHLORPERAZINE
     Dosage: USE TWICE DAILY INSIDE CHEEK
     Dates: start: 20230106, end: 20230110
  11. VENTOLIN [Concomitant]
     Active Substance: ALBUTEROL SULFATE
     Dosage: INHALE 2 DOSES AS NEEDED
     Route: 055
     Dates: start: 20220926
  12. VOLTAROL [Concomitant]
     Active Substance: DICLOFENAC SODIUM
     Dosage: 2 DF, 1X/DAY
     Dates: start: 20221212, end: 20230109

REACTIONS (4)
  - Alanine aminotransferase increased [Recovering/Resolving]
  - Abdominal pain [Recovering/Resolving]
  - Vomiting [Recovering/Resolving]
  - Pruritus [Recovering/Resolving]

NARRATIVE: CASE EVENT DATE: 20230110
